FAERS Safety Report 10260897 (Version 2)
Quarter: 2014Q3

REPORT INFORMATION
  Report Type: Spontaneous
  Country: GB (occurrence: GB)
  Receive Date: 20140626
  Receipt Date: 20140707
  Transmission Date: 20150326
  Serious: Yes (Death, Other)
  Sender: FDA-Public Use
  Company Number: PHFR2014GB004446

PATIENT
  Age: 87 Year
  Sex: Male

DRUGS (1)
  1. CLOZARIL [Suspect]
     Active Substance: CLOZAPINE
     Indication: SCHIZOPHRENIA
     Dosage: UNK
     Route: 048
     Dates: start: 20090714, end: 20140619

REACTIONS (6)
  - Infection [Unknown]
  - Dyspnoea [Unknown]
  - White blood cell count increased [Unknown]
  - Cardiopulmonary failure [Fatal]
  - Abdominal hernia perforation [Unknown]
  - Neutrophil count increased [Unknown]

NARRATIVE: CASE EVENT DATE: 20140620
